FAERS Safety Report 21416775 (Version 2)
Quarter: 2022Q4

REPORT INFORMATION
  Report Type: Spontaneous
  Country: IT (occurrence: IT)
  Receive Date: 20221006
  Receipt Date: 20221027
  Transmission Date: 20230113
  Serious: Yes (Other)
  Sender: FDA-Public Use
  Company Number: IT-PFIZER INC-PV202200072558

PATIENT
  Age: 50 Year
  Sex: Male

DRUGS (3)
  1. BEVACIZUMAB [Suspect]
     Active Substance: BEVACIZUMAB
     Indication: Colon cancer
     Dosage: 7.5 MG/KG ON DAY 1
     Route: 042
     Dates: start: 201806
  2. OXALIPLATIN [Suspect]
     Active Substance: OXALIPLATIN
     Indication: Colon cancer
     Dosage: 130 MG/M2, CYCLIC ON DAY 1
     Route: 042
     Dates: start: 201806
  3. CAPECITABINE [Suspect]
     Active Substance: CAPECITABINE
     Indication: Colon cancer
     Dosage: 2000 MG/M2, 1X/DAY ON DAYS 1 - 15
     Route: 048
     Dates: start: 201806

REACTIONS (1)
  - Gastrointestinal toxicity [Unknown]
